FAERS Safety Report 9458110 (Version 1)
Quarter: 2013Q3

REPORT INFORMATION
  Report Type: Spontaneous
  Country: FR (occurrence: None)
  Receive Date: 20130812
  Receipt Date: 20130812
  Transmission Date: 20140515
  Serious: Yes (Hospitalization)
  Sender: FDA-Public Use
  Company Number: 1753835

PATIENT
  Age: 67 Year
  Sex: Male

DRUGS (20)
  1. CARBOPLATIN [Suspect]
     Indication: PRODUCT USED FOR UNKNOWN INDICATION
     Route: 042
     Dates: start: 20120308, end: 20120419
  2. PACLITAXEL [Suspect]
     Indication: PRODUCT USED FOR UNKNOWN INDICATION
     Route: 042
     Dates: start: 20120308, end: 20120419
  3. DOXYCYCLINE [Concomitant]
  4. FLUCONAZOLE [Concomitant]
  5. NEULASTA [Concomitant]
  6. VANCOMYCINE [Concomitant]
  7. ATARAX [Concomitant]
  8. PREVISCAN [Concomitant]
  9. KARDEGIC [Concomitant]
  10. PLAVIX [Concomitant]
  11. TAHOR [Concomitant]
  12. LASILIX [Concomitant]
  13. ALDACTONE [Concomitant]
  14. TRIATEC [Concomitant]
  15. EUPANTOL [Concomitant]
  16. TEMERIT [Concomitant]
  17. AMLODIPINE [Concomitant]
  18. NOVOMIX [Concomitant]
  19. GABAPENTINE [Concomitant]
  20. CONTRAMAL [Concomitant]

REACTIONS (4)
  - Febrile bone marrow aplasia [None]
  - Hepatocellular injury [None]
  - Neuropathy peripheral [None]
  - Toxicity to various agents [None]
